FAERS Safety Report 9404469 (Version 1)
Quarter: 2013Q3

REPORT INFORMATION
  Report Type: Spontaneous
  Country: US (occurrence: US)
  Receive Date: 20130717
  Receipt Date: 20130717
  Transmission Date: 20140515
  Serious: No
  Sender: FDA-Public Use
  Company Number: US-PFIZER INC-2013206522

PATIENT
  Age: 75 Year
  Sex: Male
  Weight: 70.3 kg

DRUGS (3)
  1. LYRICA [Suspect]
     Indication: NEUROPATHY PERIPHERAL
     Dosage: 150 MG, 2X/DAY
     Route: 048
     Dates: start: 20130705, end: 20130713
  2. LYRICA [Suspect]
     Indication: NEUROPATHY PERIPHERAL
  3. METFORMIN [Concomitant]
     Indication: INSULIN RESISTANCE
     Dosage: 500 MG, 2X/DAY

REACTIONS (8)
  - Middle insomnia [Not Recovered/Not Resolved]
  - Throat tightness [Not Recovered/Not Resolved]
  - Dry mouth [Not Recovered/Not Resolved]
  - Glossitis [Not Recovered/Not Resolved]
  - Swollen tongue [Not Recovered/Not Resolved]
  - Oedema mouth [Not Recovered/Not Resolved]
  - Dizziness [Not Recovered/Not Resolved]
  - Glossodynia [Not Recovered/Not Resolved]
